FAERS Safety Report 6398231-7 (Version None)
Quarter: 2009Q4

REPORT INFORMATION
  Report Type: 
  Country: None (occurrence: None)
  Receive Date: 20091013
  Receipt Date: 20091001
  Transmission Date: 20100525
  Serious: Yes (Other)
  Sender: FDA-Public Use
  Company Number: PHEH2009US12651

PATIENT
  Sex: Female

DRUGS (3)
  1. ENABLEX [Suspect]
     Indication: URINARY INCONTINENCE
  2. ENABLEX [Suspect]
     Indication: POLLAKIURIA
  3. ENABLEX [Suspect]
     Indication: MICTURITION URGENCY

REACTIONS (10)
  - ANXIETY [None]
  - BLINDNESS [None]
  - BLINDNESS UNILATERAL [None]
  - EMOTIONAL DISORDER [None]
  - EMOTIONAL DISTRESS [None]
  - INJURY [None]
  - PAIN [None]
  - RETINAL VASCULAR DISORDER [None]
  - SOFT TISSUE INJURY [None]
  - STRESS [None]
